FAERS Safety Report 7223490-8 (Version None)
Quarter: 2011Q1

REPORT INFORMATION
  Report Type: 
  Country: None (occurrence: None)
  Receive Date: 20110112
  Receipt Date: 20100727
  Transmission Date: 20110831
  Serious: No
  Sender: FDA-Public Use
  Company Number: US-ALLERGAN-1009744US

PATIENT
  Age: 95 Year
  Sex: Female

DRUGS (3)
  1. SOOTHE XP [Concomitant]
     Indication: DRY EYE
  2. PRESERVATIVE FREE ARTIFICIAL TEARS [Concomitant]
     Indication: DRY EYE
  3. RESTASIS [Suspect]
     Indication: DRY EYE
     Dosage: 1 GTT, BID
     Route: 047
     Dates: start: 20100401

REACTIONS (2)
  - HEADACHE [None]
  - EYE PAIN [None]
